FAERS Safety Report 6886129-7 (Version None)
Quarter: 2010Q3

REPORT INFORMATION
  Report Type: 
  Country: None (occurrence: None)
  Receive Date: 20100729
  Receipt Date: 20090330
  Transmission Date: 20110219
  Serious: No
  Sender: FDA-Public Use
  Company Number: US-PFIZER INC-2009171539

PATIENT
  Sex: Female

DRUGS (5)
  1. CELEBREX [Suspect]
     Dosage: 200 MG, UNK
  2. ATENOLOL [Suspect]
  3. WARFARIN SODIUM [Suspect]
  4. ACETAMINOPHEN [Suspect]
  5. LANOXIN [Suspect]

REACTIONS (2)
  - DRUG INEFFECTIVE [None]
  - LABELLED DRUG-DRUG INTERACTION MEDICATION ERROR [None]
